FAERS Safety Report 5814608-X (Version None)
Quarter: 2008Q3

REPORT INFORMATION
  Report Type: 
  Country: None (occurrence: None)
  Receive Date: 20080718
  Receipt Date: 20071214
  Transmission Date: 20090109
  Serious: No
  Sender: FDA-Public Use
  Company Number: US-KINGPHARMUSA00001-K200701622

PATIENT

DRUGS (3)
  1. LEVOXYL [Suspect]
     Indication: THYROIDECTOMY
     Dosage: 175 MCG, QD
     Route: 048
     Dates: start: 20070101
  2. VERAPAMIL [Concomitant]
  3. MIRAPEX [Concomitant]

REACTIONS (2)
  - HEART RATE INCREASED [None]
  - THYROID FUNCTION TEST ABNORMAL [None]
